FAERS Safety Report 23444316 (Version 1)
Quarter: 2024Q1

REPORT INFORMATION
  Report Type: Spontaneous
  Country: BR (occurrence: BR)
  Receive Date: 20240125
  Receipt Date: 20240125
  Transmission Date: 20240410
  Serious: Yes (Hospitalization, Other)
  Sender: FDA-Public Use
  Company Number: BR-SA-2024SA027643

PATIENT
  Age: 56 Year
  Sex: Female

DRUGS (7)
  1. RIFAMPIN [Suspect]
     Active Substance: RIFAMPIN
     Indication: Pulmonary tuberculosis
     Dosage: 450 MG, QD
     Dates: start: 20230112
  2. ISONIAZID [Suspect]
     Active Substance: ISONIAZID
     Indication: Pulmonary tuberculosis
     Dosage: 225 MG, QD
     Dates: start: 20230112
  3. PYRAZINAMIDE [Suspect]
     Active Substance: PYRAZINAMIDE
     Indication: Pulmonary tuberculosis
     Dosage: 1200 MG, QD
     Dates: start: 20230112
  4. ETHAMBUTOL [Suspect]
     Active Substance: ETHAMBUTOL HYDROCHLORIDE
     Indication: Pulmonary tuberculosis
     Dosage: 825 MG, QD
     Dates: start: 20230112
  5. METFORMIN [Concomitant]
     Active Substance: METFORMIN HYDROCHLORIDE
     Indication: Diabetes mellitus
  6. GLYBEN [Concomitant]
     Indication: Diabetes mellitus
  7. LOSARTAN [Concomitant]
     Active Substance: LOSARTAN
     Indication: Hypertension

REACTIONS (20)
  - Oesophagitis ulcerative [Recovering/Resolving]
  - Drug intolerance [Recovering/Resolving]
  - Nausea [Recovering/Resolving]
  - Abdominal pain upper [Recovering/Resolving]
  - Vomiting [Recovering/Resolving]
  - Diabetic metabolic decompensation [Unknown]
  - Dehydration [Unknown]
  - Hyperglycaemia [Unknown]
  - Malnutrition [Unknown]
  - Haematemesis [Recovering/Resolving]
  - Haemodynamic instability [Unknown]
  - Leukocytosis [Recovered/Resolved]
  - Disorientation [Recovering/Resolving]
  - Oesophageal candidiasis [Unknown]
  - Acute kidney injury [Recovering/Resolving]
  - Gastrointestinal disorder [Recovered/Resolved]
  - Diarrhoea [Recovered/Resolved]
  - Renal impairment [Recovering/Resolving]
  - Anaemia [Recovering/Resolving]
  - Hypotension [Unknown]

NARRATIVE: CASE EVENT DATE: 20230101
